FAERS Safety Report 6893413-X (Version None)
Quarter: 2010Q3

REPORT INFORMATION
  Report Type: 
  Country: None (occurrence: None)
  Receive Date: 20100731
  Receipt Date: 20090910
  Transmission Date: 20110219
  Serious: No
  Sender: FDA-Public Use
  Company Number: US-PFIZER INC-2009267442

PATIENT
  Sex: Male
  Weight: 75.28 kg

DRUGS (10)
  1. LIPITOR [Suspect]
     Indication: HIGH DENSITY LIPOPROTEIN DECREASED
     Dosage: 10 MG, 1X/DAY
     Dates: start: 20090701
  2. LIPITOR [Suspect]
     Dosage: 20 MG, 1X/DAY
     Dates: start: 20090701, end: 20090815
  3. LIPITOR [Suspect]
     Dosage: 10 MG, 1X/DAY
     Dates: start: 20090815
  4. NIASPAN [Suspect]
     Indication: HIGH DENSITY LIPOPROTEIN DECREASED
     Dosage: 500 MG, 1X/DAY
     Dates: start: 20090711, end: 20090718
  5. NIASPAN [Suspect]
     Dosage: 1000 MG, 1X/DAY
     Dates: start: 20090718, end: 20090815
  6. NIASPAN [Suspect]
     Dosage: 500 MG, 1X/DAY
     Dates: start: 20090815, end: 20090821
  7. OLMESARTAN MEDOXOMIL [Concomitant]
     Indication: HYPERTENSION
     Dosage: 1 IN 1 D
  8. AMLODIPINE [Concomitant]
     Indication: HYPERTENSION
     Dosage: 5 MG, 1X/DAY
  9. FOLIC ACID [Concomitant]
     Indication: CARDIOVASCULAR EVENT PROPHYLAXIS
     Dosage: 1 IIN 1 D
     Dates: start: 20090701
  10. FOLIC ACID [Concomitant]
     Indication: BLOOD CHOLESTEROL INCREASED

REACTIONS (4)
  - DIZZINESS [None]
  - FLUSHING [None]
  - LETHARGY [None]
  - PALLOR [None]
